FAERS Safety Report 4936409-7 (Version None)
Quarter: 2006Q1

REPORT INFORMATION
  Report Type: 
  Country: None (occurrence: None)
  Receive Date: 20060302
  Receipt Date: 20060208
  Transmission Date: 20060701
  Serious: Yes (Hospitalization)
  Sender: FDA-Public Use
  Company Number: USA0510109677

PATIENT
  Sex: Male

DRUGS (3)
  1. CYMBALTA [Suspect]
     Indication: DEPRESSION
     Dosage: 60 MG
     Dates: start: 20050701
  2. ELAVIL [Concomitant]
  3. TOPAMAX [Concomitant]

REACTIONS (9)
  - COMA [None]
  - DELUSION [None]
  - DELUSIONAL PERCEPTION [None]
  - DRUG TOXICITY [None]
  - FALL [None]
  - HEAD INJURY [None]
  - HYPOTHERMIA [None]
  - MENTAL DISORDER [None]
  - RENAL FAILURE ACUTE [None]
